FAERS Safety Report 4449951-2 (Version None)
Quarter: 2004Q3

REPORT INFORMATION
  Report Type: 
  Country: None (occurrence: None)
  Receive Date: 20040910
  Receipt Date: 20040607
  Transmission Date: 20050211
  Serious: Yes (Other)
  Sender: FDA-Public Use
  Company Number: S04-USA-03106-01

PATIENT
  Age: 33 Year
  Sex: Female

DRUGS (2)
  1. LEXAPRO [Suspect]
     Indication: DEPRESSION
     Dosage: 10 MG QD PO
     Route: 048
     Dates: start: 20040511
  2. ZOLOFT [Concomitant]

REACTIONS (3)
  - DEPRESSION [None]
  - MUSCLE CRAMP [None]
  - SUICIDAL IDEATION [None]
